FAERS Safety Report 5201271-4 (Version None)
Quarter: 2007Q1

REPORT INFORMATION
  Report Type: 
  Country: None (occurrence: None)
  Receive Date: 20070103
  Receipt Date: 20061216
  Transmission Date: 20070707
  Serious: Yes (Other)
  Sender: FDA-Public Use
  Company Number: 234331

PATIENT
  Age: 41 Year
  Sex: Female

DRUGS (1)
  1. HERCEPTIN [Suspect]
     Indication: BREAST CANCER
     Dates: start: 20060615

REACTIONS (4)
  - CARDIAC DISORDER [None]
  - EJECTION FRACTION DECREASED [None]
  - NO THERAPEUTIC RESPONSE [None]
  - PNEUMONIA MYCOPLASMAL [None]
